FAERS Safety Report 25450166 (Version 1)
Quarter: 2025Q2

REPORT INFORMATION
  Report Type: Spontaneous
  Country: JP (occurrence: JP)
  Receive Date: 20250618
  Receipt Date: 20250618
  Transmission Date: 20250716
  Serious: Yes (Hospitalization, Other)
  Sender: AAVIS PHARMACEUTICALS
  Company Number: JP-AVS-000098

PATIENT
  Age: 50 Year
  Sex: Female

DRUGS (5)
  1. PRASUGREL [Suspect]
     Active Substance: PRASUGREL
     Indication: Acute myocardial infarction
     Route: 065
  2. ASPIRIN [Suspect]
     Active Substance: ASPIRIN
     Indication: Acute myocardial infarction
     Route: 065
  3. ARGATROBAN [Concomitant]
     Active Substance: ARGATROBAN
     Indication: Acute myocardial infarction
     Route: 065
  4. PRASUGREL [Suspect]
     Active Substance: PRASUGREL
     Indication: Acute myocardial infarction
     Route: 065
  5. PRASUGREL [Suspect]
     Active Substance: PRASUGREL
     Indication: Acute myocardial infarction
     Route: 065

REACTIONS (6)
  - Reocclusion [Recovered/Resolved]
  - Drug resistance [Unknown]
  - Ischaemic mitral regurgitation [Unknown]
  - Coronary artery occlusion [Recovered/Resolved]
  - Vascular stent occlusion [Recovered/Resolved]
  - Cardiogenic shock [Recovered/Resolved]
